FAERS Safety Report 9533506 (Version 1)
Quarter: 2013Q2

REPORT INFORMATION
  Report Type: Spontaneous
  Country: FR (occurrence: None)
  Receive Date: 20130403
  Receipt Date: 20130403
  Transmission Date: 20140414
  Serious: Yes (Life-Threatening)
  Sender: FDA-Public Use
  Company Number: US-2012-10970

PATIENT
  Age: 60 Year
  Sex: Female
  Weight: 86.5 kg

DRUGS (3)
  1. BUSULFEX [Suspect]
     Indication: BONE MARROW CONDITIONING REGIMEN
     Route: 042
     Dates: start: 20110616, end: 20110617
  2. ANTITHYMOCYTE IMMUNOGLOBULIN [Suspect]
     Indication: BONE MARROW CONDITIONING REGIMEN
     Route: 042
     Dates: start: 20110616, end: 20110617
  3. FLUDARABINE (FLUDARABINE PHOSPHATE) [Concomitant]

REACTIONS (1)
  - Convulsion [None]
